FAERS Safety Report 9279994 (Version 1)
Quarter: 2013Q2

REPORT INFORMATION
  Report Type: Spontaneous
  Country: US (occurrence: None)
  Receive Date: 20130506
  Receipt Date: 20130506
  Transmission Date: 20140414
  Serious: Yes (Hospitalization)
  Sender: FDA-Public Use
  Company Number: None

PATIENT
  Age: 73 Year
  Sex: Female

DRUGS (2)
  1. XANAX [Suspect]
     Dosage: 0.5 MG SL
     Route: 060
     Dates: start: 20121120, end: 20121120
  2. FENTANYL [Suspect]
     Dosage: 25 MCG IV PRE
     Route: 042
     Dates: start: 20121120, end: 20121120

REACTIONS (2)
  - Somnolence [None]
  - Depressed level of consciousness [None]
